FAERS Safety Report 13833219 (Version 1)
Quarter: 2017Q3

REPORT INFORMATION
  Report Type: Spontaneous
  Country: GB (occurrence: GB)
  Receive Date: 20170804
  Receipt Date: 20170804
  Transmission Date: 20171127
  Serious: Yes (Other)
  Sender: FDA-Public Use
  Company Number: GB-AUROBINDO-AUR-APL-2017-37889

PATIENT
  Age: 40 Year
  Sex: Female

DRUGS (1)
  1. METRONIDAZOLE. [Suspect]
     Active Substance: METRONIDAZOLE
     Indication: CANDIDA INFECTION
     Dosage: 400 MG, UNK
     Route: 065
     Dates: start: 201608

REACTIONS (6)
  - Paraesthesia [Unknown]
  - Diarrhoea [Unknown]
  - Eye pain [Unknown]
  - Muscular weakness [Unknown]
  - Dyspnoea [Unknown]
  - Abdominal distension [Unknown]
